FAERS Safety Report 17170523 (Version 2)
Quarter: 2020Q1

REPORT INFORMATION
  Report Type: Spontaneous
  Country: FR (occurrence: FR)
  Receive Date: 20191218
  Receipt Date: 20200318
  Transmission Date: 20200409
  Serious: Yes (Other)
  Sender: FDA-Public Use
  Company Number: FR-JNJFOC-20191213708

PATIENT
  Age: 26 Year
  Sex: Female

DRUGS (1)
  1. STELARA [Suspect]
     Active Substance: USTEKINUMAB
     Indication: PSORIASIS
     Route: 058
     Dates: start: 201606

REACTIONS (1)
  - Papillary thyroid cancer [Unknown]

NARRATIVE: CASE EVENT DATE: 201905
